FAERS Safety Report 9292709 (Version 4)
Quarter: 2014Q1

REPORT INFORMATION
  Report Type: Spontaneous
  Country: US (occurrence: US)
  Receive Date: 20130516
  Receipt Date: 20140326
  Transmission Date: 20141002
  Serious: Yes (Hospitalization)
  Sender: FDA-Public Use
  Company Number: US-BAYER-2013-059722

PATIENT
  Age: 23 Year
  Sex: Female
  Weight: 76.19 kg

DRUGS (8)
  1. MIRENA [Suspect]
     Indication: CONTRACEPTION
     Dosage: 20 MCG/24HR, CONT
     Route: 015
     Dates: start: 20091105, end: 20110512
  2. TRAZODONE [Concomitant]
     Dosage: 50 MG, HS
     Route: 048
  3. MAXALT [Concomitant]
     Dosage: UNK UNK, PRN
  4. CYMBALTA [Concomitant]
     Dosage: 60 MG, HS
     Route: 048
  5. PROPRANOLOL [Concomitant]
     Dosage: 40 MG, BID
  6. LAMISIL [Concomitant]
     Dosage: 25 MG, HS
  7. LORTAB [Concomitant]
     Indication: PAIN
     Dosage: 1 OR 2 EVERY FOUR HOURS AS NEEDED
     Route: 048
  8. ACETAMINOPHEN W/HYDROCODONE [Concomitant]

REACTIONS (6)
  - Uterine perforation [None]
  - Abdominal pain [None]
  - Injury [None]
  - Pain [None]
  - Emotional distress [None]
  - Device dislocation [None]
